FAERS Safety Report 8491584-5 (Version None)
Quarter: 2012Q2

REPORT INFORMATION
  Report Type: 
  Country: None (occurrence: None)
  Receive Date: 20120402
  Receipt Date: 20100317
  Transmission Date: 20120825
  Serious: Yes (Other)
  Sender: FDA-Public Use
  Company Number: PHHY2010US16559

PATIENT
  Sex: Male
  Weight: 178 kg

DRUGS (3)
  1. EXFORGE HCT [Suspect]
     Indication: HYPERTENSION
     Dosage: ORAL
     Route: 048
     Dates: start: 20090916, end: 20100311
  2. ASPIRIN [Concomitant]
  3. ZOCOR [Concomitant]

REACTIONS (1)
  - RASH GENERALISED [None]
